FAERS Safety Report 4777333-2 (Version None)
Quarter: 2005Q3

REPORT INFORMATION
  Report Type: 
  Country: None (occurrence: None)
  Receive Date: 20050915
  Receipt Date: 20050902
  Transmission Date: 20060218
  Serious: Yes (Hospitalization)
  Sender: FDA-Public Use
  Company Number: US015934

PATIENT
  Age: 78 Year
  Sex: Female
  Weight: 54.4316 kg

DRUGS (2)
  1. ACTIQ [Suspect]
     Indication: BACK PAIN
     Dosage: 600 UG QID BUCCAL
     Dates: start: 20030101
  2. OXYCONTIN [Concomitant]

REACTIONS (4)
  - CONCUSSION [None]
  - CONTUSION [None]
  - FALL [None]
  - HEAD INJURY [None]
